FAERS Safety Report 13565547 (Version 1)
Quarter: 2017Q2

REPORT INFORMATION
  Report Type: Spontaneous
  Country: MX (occurrence: MX)
  Receive Date: 20170519
  Receipt Date: 20170519
  Transmission Date: 20170830
  Serious: Yes (Other)
  Sender: FDA-Public Use
  Company Number: MX-ELI_LILLY_AND_COMPANY-MX201705005861

PATIENT
  Age: 79 Year
  Sex: Female

DRUGS (1)
  1. TERIPARATIDE [Suspect]
     Active Substance: TERIPARATIDE
     Indication: PRODUCT USED FOR UNKNOWN INDICATION
     Dosage: UNK, UNKNOWN
     Route: 065
     Dates: start: 20170429, end: 20170512

REACTIONS (4)
  - Spinal disorder [Recovering/Resolving]
  - Pain [Recovered/Resolved]
  - Pain in extremity [Unknown]
  - Limb discomfort [Unknown]

NARRATIVE: CASE EVENT DATE: 20170510
